FAERS Safety Report 9863483 (Version 1)
Quarter: 2014Q1

REPORT INFORMATION
  Report Type: Spontaneous
  Country: US (occurrence: US)
  Receive Date: 20140203
  Receipt Date: 20140203
  Transmission Date: 20141002
  Serious: No
  Sender: FDA-Public Use
  Company Number: US-GILEAD-2014-0093511

PATIENT
  Age: 84 Year
  Sex: Male

DRUGS (1)
  1. LETAIRIS [Suspect]
     Indication: PRODUCT USED FOR UNKNOWN INDICATION
     Dosage: 5 MG, QD
     Route: 065
     Dates: start: 20140121

REACTIONS (4)
  - Decreased appetite [Not Recovered/Not Resolved]
  - Weight increased [Not Recovered/Not Resolved]
  - Nausea [Not Recovered/Not Resolved]
  - Dyspnoea [Not Recovered/Not Resolved]
